FAERS Safety Report 15896041 (Version 1)
Quarter: 2019Q1

REPORT INFORMATION
  Report Type: Spontaneous
  Country: US (occurrence: US)
  Receive Date: 20190131
  Receipt Date: 20190131
  Transmission Date: 20190417
  Serious: No
  Sender: FDA-Public Use
  Company Number: US-SA-2019SA023263

PATIENT
  Age: 54 Year
  Sex: Female

DRUGS (3)
  1. COQ10 [UBIDECARENONE] [Concomitant]
     Active Substance: UBIDECARENONE
  2. AUBAGIO [Suspect]
     Active Substance: TERIFLUNOMIDE
     Indication: MULTIPLE SCLEROSIS
     Dosage: 14 MG, QD
     Route: 048
     Dates: start: 201804
  3. PROBIOTICS NOS [Concomitant]
     Active Substance: PROBIOTICS NOS

REACTIONS (2)
  - Depression [Unknown]
  - Liver disorder [Unknown]
